FAERS Safety Report 8282557-6 (Version None)
Quarter: 2012Q2

REPORT INFORMATION
  Report Type: 
  Country: None (occurrence: None)
  Receive Date: 20120413
  Receipt Date: 20120410
  Transmission Date: 20120825
  Serious: Yes (Hospitalization, Other)
  Sender: FDA-Public Use
  Company Number: ZA-PFIZER INC-2012085886

PATIENT
  Age: 53 Year
  Sex: Male

DRUGS (1)
  1. VARENICLINE TARTRATE [Suspect]
     Indication: SMOKING CESSATION THERAPY
     Dosage: UNK
     Route: 048
     Dates: start: 20120105, end: 20120328

REACTIONS (8)
  - DEPRESSION [None]
  - AGGRESSION [None]
  - SUICIDAL IDEATION [None]
  - AGITATION [None]
  - ALCOHOL POISONING [None]
  - AFFECTIVE DISORDER [None]
  - MAJOR DEPRESSION [None]
  - IRRITABILITY [None]
